FAERS Safety Report 24254134 (Version 1)
Quarter: 2024Q3

REPORT INFORMATION
  Report Type: Spontaneous
  Country: US (occurrence: None)
  Receive Date: 20240826
  Receipt Date: 20240826
  Transmission Date: 20241017
  Serious: No
  Sender: Public
  Company Number: None

PATIENT

DRUGS (4)
  1. VIMPAT [Suspect]
     Active Substance: LACOSAMIDE
  2. LYRICA [Suspect]
     Active Substance: PREGABALIN
  3. LACOSAMIDE [Suspect]
     Active Substance: LACOSAMIDE
  4. LAMOTRIGINE [Suspect]
     Active Substance: LAMOTRIGINE

REACTIONS (3)
  - Incorrect dose administered [None]
  - Inappropriate schedule of product discontinuation [None]
  - Product selection error [None]
